FAERS Safety Report 8118066-4 (Version None)
Quarter: 2011Q4

REPORT INFORMATION
  Report Type: 
  Country: None (occurrence: None)
  Receive Date: 20111227
  Receipt Date: 20111010
  Transmission Date: 20120403
  Serious: No
  Sender: FDA-Public Use
  Company Number: PHEH2011US06569

PATIENT
  Age: 48 Year
  Sex: Female

DRUGS (2)
  1. GILENYA [Suspect]
     Indication: MULTIPLE SCLEROSIS
     Dosage: 0.5 MG, QD, ORAL
     Route: 048
     Dates: start: 20110909
  2. FLUVACCIN (INFLUENZA VIRUS VACCINE POLYVALENT) [Concomitant]

REACTIONS (5)
  - VISION BLURRED [None]
  - SENSATION OF HEAVINESS [None]
  - THROAT IRRITATION [None]
  - FEELING HOT [None]
  - TREMOR [None]
